FAERS Safety Report 12731553 (Version 5)
Quarter: 2021Q1

REPORT INFORMATION
  Report Type: Spontaneous
  Country: JP (occurrence: JP)
  Receive Date: 20160912
  Receipt Date: 20210305
  Transmission Date: 20210419
  Serious: Yes (Hospitalization, Other)
  Sender: FDA-Public Use
  Company Number: JP-UNITED THERAPEUTICS-UNT-2016-014196

PATIENT
  Age: 63 Year
  Sex: Female
  Weight: 51.6 kg

DRUGS (27)
  1. REMODULIN [Suspect]
     Active Substance: TREPROSTINIL
     Dosage: 0.03833 ?G/KG, CONTINUING
     Route: 058
     Dates: start: 201608, end: 201608
  2. REMODULIN [Suspect]
     Active Substance: TREPROSTINIL
     Dosage: 0.0567 ?G/KG, CONTINUING
     Route: 058
     Dates: start: 2016
  3. REMODULIN [Suspect]
     Active Substance: TREPROSTINIL
     Indication: PULMONARY ARTERIAL HYPERTENSION
     Dosage: UNK
     Route: 058
     Dates: start: 20160725
  4. LUPRAC [Concomitant]
     Active Substance: TORSEMIDE
     Indication: PULMONARY ARTERIAL HYPERTENSION
     Dosage: UNK
     Route: 048
  5. REMODULIN [Suspect]
     Active Substance: TREPROSTINIL
     Dosage: 0.04167 ?G/KG, CONTINUING
     Route: 058
     Dates: start: 201608, end: 201608
  6. REMODULIN [Suspect]
     Active Substance: TREPROSTINIL
     Dosage: 0.04667 ?G/KG, CONTINUING
     Route: 058
     Dates: start: 201608, end: 2016
  7. REMODULIN [Suspect]
     Active Substance: TREPROSTINIL
     Dosage: UNK, CONTINUING (REDUCED DOSE)
     Route: 058
     Dates: start: 20190814
  8. ADEMPAS [Concomitant]
     Active Substance: RIOCIGUAT
     Indication: PULMONARY ARTERIAL HYPERTENSION
     Dosage: 7.5 MG/ DAY
     Route: 048
     Dates: start: 20160620
  9. MEILAX [Concomitant]
     Active Substance: ETHYL LOFLAZEPATE
     Indication: PROPHYLAXIS
     Dosage: UNK
     Route: 048
     Dates: start: 20160831, end: 20160913
  10. ALDACTONE A [Concomitant]
     Active Substance: SPIRONOLACTONE
     Indication: PROPHYLAXIS
     Dosage: UNK
     Route: 048
     Dates: start: 20191211, end: 20200206
  11. REMODULIN [Suspect]
     Active Substance: TREPROSTINIL
     Dosage: 0.0867 ?G/KG, CONTINUING
     Route: 058
  12. REMODULIN [Suspect]
     Active Substance: TREPROSTINIL
     Dosage: UNK, CONTINUING (DOSE REDUCED)
     Route: 016
     Dates: start: 20180928, end: 20181012
  13. REMODULIN [Suspect]
     Active Substance: TREPROSTINIL
     Dosage: UNK, CONTINUING (DOSE REDUCED)
     Route: 016
     Dates: start: 20181211, end: 20181217
  14. BROTIZOLAM [Concomitant]
     Active Substance: BROTIZOLAM
     Indication: PROPHYLAXIS
     Dosage: UNK
     Route: 048
     Dates: start: 20160820, end: 20160913
  15. PRAMIEL [METOCLOPRAMIDE] [Concomitant]
     Indication: PROPHYLAXIS
     Dosage: UNK
     Route: 048
     Dates: start: 20160831, end: 20160913
  16. REMODULIN [Suspect]
     Active Substance: TREPROSTINIL
     Dosage: 0.01167 ?G/KG, CONTINUING
     Route: 058
     Dates: start: 2016, end: 201608
  17. REMODULIN [Suspect]
     Active Substance: TREPROSTINIL
     Dosage: 0.0983 ?G/KG, CONTINUING
     Route: 058
     Dates: start: 2018, end: 20180928
  18. REMODULIN [Suspect]
     Active Substance: TREPROSTINIL
     Dosage: UNK UNK, CONTINUING
     Route: 058
     Dates: start: 20181012, end: 20181210
  19. REMODULIN [Suspect]
     Active Substance: TREPROSTINIL
     Dosage: 0.0758 ?G/KG, CONTINUING
     Route: 016
     Dates: start: 201812, end: 20181211
  20. OPSUMIT [Concomitant]
     Active Substance: MACITENTAN
     Indication: PULMONARY ARTERIAL HYPERTENSION
     Dosage: 10 MG/ DAILY
     Route: 048
     Dates: start: 20160704
  21. TRAZODONE HYDROCHLORIDE. [Concomitant]
     Active Substance: TRAZODONE HYDROCHLORIDE
     Indication: PROPHYLAXIS
     Dosage: UNK
     Route: 048
     Dates: start: 20160831
  22. L?CARBOCYSTEINE [Concomitant]
     Active Substance: CARBOCYSTEINE
     Indication: PROPHYLAXIS
     Dosage: 1500 MG/DAY
     Route: 048
     Dates: start: 20160901, end: 20161001
  23. DIART [Concomitant]
     Active Substance: AZOSEMIDE
     Indication: PROPHYLAXIS
     Dosage: UNK
     Route: 048
     Dates: start: 20191211
  24. REMODULIN [Suspect]
     Active Substance: TREPROSTINIL
     Dosage: UNK, CONTINUING
     Route: 058
     Dates: start: 20181217
  25. FUROSEMIDE. [Concomitant]
     Active Substance: FUROSEMIDE
     Indication: PROPHYLAXIS
     Dosage: UNK
     Route: 065
     Dates: start: 20180512, end: 20180517
  26. UPTRAVI [Concomitant]
     Active Substance: SELEXIPAG
     Indication: PULMONARY ARTERIAL HYPERTENSION
     Dosage: UNK
     Route: 048
     Dates: start: 20190717
  27. CRAVIT [Concomitant]
     Active Substance: LEVOFLOXACIN
     Indication: PROPHYLAXIS
     Dosage: UNK
     Route: 065
     Dates: start: 20190125, end: 20190125

REACTIONS (12)
  - Otitis media [Recovering/Resolving]
  - Vomiting [Recovering/Resolving]
  - Injection site erythema [Recovered/Resolved]
  - Injection site induration [Recovering/Resolving]
  - Pneumonia [Recovered/Resolved]
  - Bladder cancer [Recovering/Resolving]
  - Groin pain [Recovering/Resolving]
  - Product use issue [Unknown]
  - Headache [Recovered/Resolved]
  - Enterocolitis [Not Recovered/Not Resolved]
  - Injection site pain [Recovering/Resolving]
  - Injection site pruritus [Recovering/Resolving]

NARRATIVE: CASE EVENT DATE: 20160801
